FAERS Safety Report 4781613-4 (Version None)
Quarter: 2005Q3

REPORT INFORMATION
  Report Type: 
  Country: None (occurrence: None)
  Receive Date: 20050928
  Receipt Date: 20050916
  Transmission Date: 20060218
  Serious: Yes (Other)
  Sender: FDA-Public Use
  Company Number: US-SANOFI-SYNTHELABO-A03200502946

PATIENT
  Sex: Male
  Weight: 71.2 kg

DRUGS (7)
  1. PLAVIX [Suspect]
     Indication: CORONARY ARTERIAL STENT INSERTION
     Route: 048
     Dates: start: 20000101
  2. ATENOLOL [Concomitant]
     Route: 048
  3. ATORVASTATIN [Concomitant]
     Route: 048
  4. TERAZOSIN HCL [Concomitant]
     Route: 048
  5. HYDROCODONE [Concomitant]
     Route: 048
     Dates: start: 20000101
  6. ASPIRIN [Concomitant]
     Route: 048
     Dates: start: 19960101
  7. VITAMIN [Concomitant]
     Route: 048

REACTIONS (5)
  - ABDOMINAL PAIN [None]
  - CONSTIPATION [None]
  - DYSPEPSIA [None]
  - GASTRITIS EROSIVE [None]
  - OESOPHAGEAL STENOSIS [None]
